FAERS Safety Report 11594743 (Version 1)
Quarter: 2015Q4

REPORT INFORMATION
  Report Type: Spontaneous
  Country: US (occurrence: US)
  Receive Date: 20151005
  Receipt Date: 20151005
  Transmission Date: 20160304
  Serious: Yes (Other)
  Sender: FDA-Public Use
  Company Number: US-NPS_PHARMACEUTICALS-002191

PATIENT
  Age: 63 Year
  Sex: Female
  Weight: 45.9 kg

DRUGS (25)
  1. CALCIUM CITRATE [Concomitant]
     Active Substance: CALCIUM CITRATE
     Dosage: 2 TABS, 3 TIMES A DAY
     Route: 048
  2. NEXIUM [Concomitant]
     Active Substance: ESOMEPRAZOLE MAGNESIUM
     Dosage: DELAYED RELEASE CAPSULE, 1 CAP ONCE A DAY
     Route: 048
  3. KLOR-CON M20 [Concomitant]
     Active Substance: POTASSIUM CHLORIDE
     Dosage: 1/2 TAB 3 TIMES A DAY
     Route: 048
  4. TINCTURE OF OPIUM [Concomitant]
     Active Substance: OPIUM
     Dosage: 1.5 ML AS DIRECTED
  5. POTASSIUM CHLORIDE. [Concomitant]
     Active Substance: POTASSIUM CHLORIDE
     Dosage: EXTENDED RELEASE 1 1/2 TAB(S) ONCE A DAY
     Route: 048
  6. HYDROCORTISONE TOPICAL [Concomitant]
     Dosage: 2.5% 1 APP AS NEEDED
     Route: 061
  7. MULTIVITAMIN [Concomitant]
     Active Substance: VITAMINS
     Dosage: DF
     Route: 048
  8. FOLIC ACID. [Concomitant]
     Active Substance: FOLIC ACID
     Dosage: DF, 1 TAB, 3 TIMES A DAY
     Route: 048
  9. ENDOMUNE PROBIOTIC [Concomitant]
     Dosage: 1 TAB 3 TIMES A DAY
     Route: 048
  10. TPN [Concomitant]
     Active Substance: AMINO ACIDS\DEXTROSE\ELECTROLYTES NOS\SOYBEAN OIL
     Indication: MEDICAL DIET
     Dosage: [DF] EVERY FEW WEEKS
  11. ENALAPRIL [Concomitant]
     Active Substance: ENALAPRIL
     Route: 048
  12. NEXIUM [Concomitant]
     Active Substance: ESOMEPRAZOLE MAGNESIUM
     Dosage: 40 DELAYED RELEASE CAPSULE (S) 1 CAP TWICE A DAY
     Route: 048
  13. IRON INFUSION [Concomitant]
     Active Substance: IRON
     Dosage: DF, AS NEEDED
  14. IMODIUM [Concomitant]
     Active Substance: LOPERAMIDE HYDROCHLORIDE
     Dosage: DF, 3 TO 4 TABS, 3 TIMES A DAY
     Route: 048
  15. ZINC [Concomitant]
     Active Substance: ZINC\ZINC CHLORIDE
     Route: 048
  16. FISH OIL [Concomitant]
     Active Substance: FISH OIL
     Dosage: DF
  17. GATTEX [Suspect]
     Active Substance: TEDUGLUTIDE\WATER
     Indication: SHORT-BOWEL SYNDROME
     Route: 058
     Dates: start: 20140402
  18. VIVELLE [Concomitant]
     Active Substance: ESTRADIOL
     Dosage: .05 MG FILM, EXTENDED RELEASE 1 PATCH 2 TIMES A WEEK
  19. HYDROCODONE/ACETAMINOPHEN [Concomitant]
     Active Substance: ACETAMINOPHEN\HYDROCODONE
     Dosage: 1 TAB EVERY 6 HOURS
     Route: 048
  20. MAGNESIUM [Concomitant]
     Active Substance: MAGNESIUM
     Route: 048
  21. B12 SHOTS [Concomitant]
     Active Substance: CYANOCOBALAMIN
     Dosage: 1000 MCG 1 CC TWICE A MONTH
  22. IMURAN [Concomitant]
     Active Substance: AZATHIOPRINE
     Route: 048
  23. NYSTATIN TOPICAL [Concomitant]
     Dosage: POWDER, 1 APP 3 TIMES A DAY TO AFFECTED AREAS
  24. PHENERGAN [Concomitant]
     Active Substance: PROMETHAZINE HYDROCHLORIDE
     Route: 048
  25. VITAMIN D [Concomitant]
     Active Substance: CHOLECALCIFEROL
     Dosage: 1 TAB 3 TIMES A DAY
     Route: 048

REACTIONS (2)
  - Abdominal pain upper [Not Recovered/Not Resolved]
  - Squamous cell carcinoma [Recovered/Resolved]

NARRATIVE: CASE EVENT DATE: 2015
